FAERS Safety Report 7411773-8 (Version None)
Quarter: 2011Q2

REPORT INFORMATION
  Report Type: 
  Country: None (occurrence: None)
  Receive Date: 20110413
  Receipt Date: 20110111
  Transmission Date: 20111010
  Serious: Yes (Other)
  Sender: FDA-Public Use
  Company Number: US-BRISTOL-MYERS SQUIBB COMPANY-15480395

PATIENT
  Age: 74 Year
  Sex: Male

DRUGS (1)
  1. ERBITUX [Suspect]

REACTIONS (2)
  - DYSPNOEA [None]
  - TREMOR [None]
